FAERS Safety Report 5607499-3 (Version None)
Quarter: 2008Q1

REPORT INFORMATION
  Report Type: 
  Country: None (occurrence: None)
  Receive Date: 20080125
  Receipt Date: 20080121
  Transmission Date: 20080703
  Serious: Yes (Other)
  Sender: FDA-Public Use
  Company Number: GXKR2008DE00930

PATIENT
  Age: 69 Year
  Sex: Female

DRUGS (2)
  1. AMANTADINE HCL [Suspect]
     Dosage: ORAL
     Route: 048
  2. L-DOPA       (LEVODOPA) [Concomitant]

REACTIONS (1)
  - SCLERODERMA [None]
